FAERS Safety Report 5091708-6 (Version None)
Quarter: 2006Q3

REPORT INFORMATION
  Report Type: 
  Country: None (occurrence: None)
  Receive Date: 20060824
  Receipt Date: 20060809
  Transmission Date: 20061208
  Serious: Yes (Hospitalization)
  Sender: FDA-Public Use
  Company Number: 228855

PATIENT
  Age: 55 Year
  Sex: Male
  Weight: 92.9 kg

DRUGS (8)
  1. AVASTIN [Suspect]
     Indication: COLON CANCER
     Dosage: 512.5 MG, Q2W, INTRAVENOUS
     Route: 042
     Dates: start: 20050420, end: 20060307
  2. OXALIPLATIN [Suspect]
     Indication: COLON CANCER
     Dosage: 175 MG, Q2W, INTRAVENOUS
     Route: 042
     Dates: start: 20050422, end: 20050921
  3. LEUCOVORIN CALCIUM [Suspect]
     Indication: COLON CANCER
     Dosage: 400 MG, Q2W, INTRAVENOUS
     Route: 042
     Dates: start: 20050422, end: 20051020
  4. FLUOROURACIL [Suspect]
     Indication: COLON CANCER
     Dosage: 825 MG, Q2W, INTRAVENOUS
     Route: 042
     Dates: start: 20050420, end: 20051020
  5. OMEPRAZOLE [Concomitant]
  6. LIPITOR [Concomitant]
  7. PROCHLORPERAZINE MALEATE [Concomitant]
  8. TRAMADOL HCL [Concomitant]

REACTIONS (5)
  - CENTRAL LINE INFECTION [None]
  - DYSPNOEA [None]
  - HYPOAESTHESIA [None]
  - MALAISE [None]
  - STAPHYLOCOCCAL INFECTION [None]
